FAERS Safety Report 5132540-4 (Version None)
Quarter: 2006Q4

REPORT INFORMATION
  Report Type: 
  Country: None (occurrence: None)
  Receive Date: 20061023
  Receipt Date: 20060905
  Transmission Date: 20070319
  Serious: Yes (Hospitalization)
  Sender: FDA-Public Use
  Company Number: US-ROCHE-462303

PATIENT
  Age: 51 Year
  Sex: Female
  Weight: 63 kg

DRUGS (1)
  1. BONIVA [Suspect]
     Indication: DRUG USE FOR UNKNOWN INDICATION
     Dosage: NOT TAKEN UNTIL JULY 2006 OR AUGUST 2006
     Route: 048
     Dates: start: 20050410

REACTIONS (3)
  - ANAPHYLACTIC REACTION [None]
  - HEPATITIS [None]
  - INFLUENZA LIKE ILLNESS [None]
